FAERS Safety Report 9814308 (Version 1)
Quarter: 2014Q1

REPORT INFORMATION
  Report Type: Report from Study
  Country: DE (occurrence: DE)
  Receive Date: 20140113
  Receipt Date: 20140113
  Transmission Date: 20141002
  Serious: Yes (Hospitalization, Other)
  Sender: FDA-Public Use
  Company Number: DE-ABBVIE-14P-062-1187002-00

PATIENT
  Age: 65 Year
  Sex: Male

DRUGS (3)
  1. HUMIRA [Suspect]
     Indication: COLITIS ULCERATIVE
     Route: 058
     Dates: start: 20131002
  2. ARIXTRA [Concomitant]
     Indication: PRODUCT USED FOR UNKNOWN INDICATION
  3. LORZAAR PLUS PROTECT [Concomitant]
     Indication: PRODUCT USED FOR UNKNOWN INDICATION

REACTIONS (2)
  - Epistaxis [Recovering/Resolving]
  - Epistaxis [Unknown]
